FAERS Safety Report 12091985 (Version 1)
Quarter: 2016Q1

REPORT INFORMATION
  Report Type: Report from Study
  Country: US (occurrence: US)
  Receive Date: 20160219
  Receipt Date: 20160219
  Transmission Date: 20160526
  Serious: Yes (Other)
  Sender: FDA-Public Use
  Company Number: US-ROCHE-1701749

PATIENT
  Age: 42 Year
  Sex: Male
  Weight: 100.79 kg

DRUGS (19)
  1. LOSARTAN POTASSIUM. [Concomitant]
     Active Substance: LOSARTAN POTASSIUM
     Route: 048
  2. PREDNISONE. [Concomitant]
     Active Substance: PREDNISONE
     Dosage: 20 MG TABLET 2 TABLET WITH FOOD OR MILK DAY PRIOR TO EACH RITUXIMAB INFUSION
     Route: 065
  3. METHYLPREDNISOLONE. [Concomitant]
     Active Substance: METHYLPREDNISOLONE
     Route: 065
  4. METHYLPREDNISOLONE. [Concomitant]
     Active Substance: METHYLPREDNISOLONE
     Route: 065
  5. PREDNISONE. [Concomitant]
     Active Substance: PREDNISONE
     Dosage: 1 TABLET ONCE A DAY, FOR 3 DAYS
     Route: 065
  6. RITUXAN [Suspect]
     Active Substance: RITUXIMAB
     Dosage: STRENGTH:10 MG/ML,  EVERY 4 WEEKS
     Route: 042
     Dates: start: 20160105
  7. RITUXAN [Suspect]
     Active Substance: RITUXIMAB
     Dosage: STRENGTH:10 MG/ML,  EVERY 4 WEEKS
     Route: 042
     Dates: start: 20160117
  8. METOLAZONE. [Concomitant]
     Active Substance: METOLAZONE
     Route: 048
  9. FLOMAX [Concomitant]
     Active Substance: TAMSULOSIN HYDROCHLORIDE
  10. LOSARTAN POTASSIUM. [Concomitant]
     Active Substance: LOSARTAN POTASSIUM
     Route: 048
  11. ZANTAC [Concomitant]
     Active Substance: RANITIDINE HYDROCHLORIDE
     Route: 065
  12. FUROSEMIDE. [Concomitant]
     Active Substance: FUROSEMIDE
     Route: 048
  13. BENADRYL [Concomitant]
     Active Substance: DIPHENHYDRAMINE HYDROCHLORIDE
     Route: 065
  14. RITUXAN [Suspect]
     Active Substance: RITUXIMAB
     Dosage: 10MG/ML ONCE IN A WEEK
     Route: 042
     Dates: start: 20151228
  15. METOLAZONE. [Concomitant]
     Active Substance: METOLAZONE
     Route: 048
  16. RITUXAN [Suspect]
     Active Substance: RITUXIMAB
     Dosage: STRENGTH:10 MG/ML,  EVERY 4 WEEKS
     Route: 042
     Dates: start: 20160119
  17. BENADRYL [Concomitant]
     Active Substance: DIPHENHYDRAMINE HYDROCHLORIDE
     Route: 065
  18. RITUXAN [Suspect]
     Active Substance: RITUXIMAB
     Indication: NEPHRITIC SYNDROME
     Dosage: EVERY 4 WEEKS
     Route: 042
  19. VITAMIN D3 [Concomitant]
     Active Substance: CHOLECALCIFEROL
     Route: 048

REACTIONS (6)
  - Paraesthesia [Recovered/Resolved]
  - Dysphagia [Recovered/Resolved]
  - Muscle spasms [Unknown]
  - Pharyngeal paraesthesia [Recovered/Resolved]
  - Throat tightness [Unknown]
  - Infusion related reaction [Recovered/Resolved]

NARRATIVE: CASE EVENT DATE: 20151228
